FAERS Safety Report 13111304 (Version 5)
Quarter: 2017Q2

REPORT INFORMATION
  Report Type: Report from Study
  Country: US (occurrence: US)
  Receive Date: 20170112
  Receipt Date: 20170406
  Transmission Date: 20170830
  Serious: Yes (Hospitalization)
  Sender: FDA-Public Use
  Company Number: US-ACTELION-A-US2017-148017

PATIENT
  Age: 57 Year
  Sex: Female
  Weight: 60.77 kg

DRUGS (6)
  1. ADCIRCA [Concomitant]
     Active Substance: TADALAFIL
  2. UPTRAVI [Suspect]
     Active Substance: SELEXIPAG
     Dosage: 600 MCG, BID
     Route: 048
     Dates: start: 20161121
  3. OPSUMIT [Suspect]
     Active Substance: MACITENTAN
     Indication: PULMONARY ARTERIAL HYPERTENSION
     Dosage: 10 MG, QD
     Route: 048
     Dates: start: 20161107
  4. UPTRAVI [Suspect]
     Active Substance: SELEXIPAG
     Dosage: 400 MCG, BID
     Route: 048
  5. UPTRAVI [Suspect]
     Active Substance: SELEXIPAG
     Indication: PULMONARY ARTERIAL HYPERTENSION
     Dosage: 200 MCG, BID
     Route: 048
     Dates: start: 20161121
  6. UPTRAVI [Suspect]
     Active Substance: SELEXIPAG
     Dosage: 800 MCG, BID
     Route: 048
     Dates: start: 20161121

REACTIONS (11)
  - Viral upper respiratory tract infection [Unknown]
  - Abdominal discomfort [Unknown]
  - Headache [Unknown]
  - Pain in jaw [Recovering/Resolving]
  - Musculoskeletal pain [Unknown]
  - Unevaluable event [Unknown]
  - Pain in extremity [Unknown]
  - Diarrhoea [Recovering/Resolving]
  - Pneumonia [Unknown]
  - Fluid retention [Unknown]
  - Pain [Unknown]
